FAERS Safety Report 7240015-1 (Version None)
Quarter: 2011Q1

REPORT INFORMATION
  Report Type: 
  Country: None (occurrence: None)
  Receive Date: 20110124
  Receipt Date: 20110112
  Transmission Date: 20110831
  Serious: No
  Sender: FDA-Public Use
  Company Number: US-BIOGENIDEC-2011BI002211

PATIENT
  Sex: Female

DRUGS (1)
  1. TYSABRI [Suspect]
     Indication: MULTIPLE SCLEROSIS
     Route: 042
     Dates: start: 20100921

REACTIONS (6)
  - PARAESTHESIA [None]
  - MUSCULOSKELETAL PAIN [None]
  - MUSCLE TIGHTNESS [None]
  - DEPRESSION [None]
  - HYPOAESTHESIA [None]
  - NECK PAIN [None]
